FAERS Safety Report 6551762-9 (Version None)
Quarter: 2010Q1

REPORT INFORMATION
  Report Type: 
  Country: None (occurrence: None)
  Receive Date: 20100126
  Receipt Date: 20100115
  Transmission Date: 20100710
  Serious: Yes (Death, Life-Threatening, Hospitalization)
  Sender: FDA-Public Use
  Company Number: PL-JNJFOC-20081001763

PATIENT
  Sex: Male

DRUGS (21)
  1. CYTARABINE [Suspect]
     Indication: ACUTE MYELOID LEUKAEMIA
     Dosage: CYCLE 1, 39.6
     Route: 058
     Dates: start: 20081001
  2. CYTARABINE [Suspect]
     Dosage: CYCLE 2; 37.8 MG
     Route: 058
     Dates: start: 20081001
  3. CYTARABINE [Suspect]
     Dosage: CYCLE 1
     Route: 058
  4. CYTARABINE [Suspect]
     Route: 058
  5. HYDROXYCARBAMIDE [Concomitant]
     Route: 065
  6. ZOFRAN [Concomitant]
     Route: 065
  7. NORMAL SALINE [Concomitant]
     Dosage: 0.9%
     Route: 065
  8. POTASSIUM CHLORIDE [Concomitant]
     Route: 065
  9. CAPTOPRIL [Concomitant]
     Route: 065
  10. METOCARD [Concomitant]
     Route: 065
  11. ENARENAL [Concomitant]
     Route: 065
  12. TERTENSIF SR [Concomitant]
     Route: 065
  13. LACTULOSE [Concomitant]
     Route: 065
  14. BIOTUM [Concomitant]
     Route: 065
  15. FUROSEMID [Concomitant]
     Route: 065
  16. MILURIT [Concomitant]
     Route: 065
  17. MERONEM [Concomitant]
     Route: 065
  18. KETOCONAZOLE [Concomitant]
     Route: 065
  19. EXACYL [Concomitant]
     Route: 065
  20. PROXACIN [Concomitant]
     Route: 065
  21. ERYTHROCYTE MASS [Concomitant]
     Dosage: X 27
     Route: 065

REACTIONS (4)
  - GENERAL PHYSICAL CONDITION ABNORMAL [None]
  - HYPERTENSIVE CRISIS [None]
  - PULMONARY OEDEMA [None]
  - PYREXIA [None]
